FAERS Safety Report 9148762 (Version 1)
Quarter: 2013Q1

REPORT INFORMATION
  Report Type: Spontaneous
  Country: US (occurrence: None)
  Receive Date: 20130220
  Receipt Date: 20130220
  Transmission Date: 20140127
  Serious: Yes (Death)
  Sender: FDA-Public Use
  Company Number: 2013-00520

PATIENT
  Age: 60 Year
  Sex: Female

DRUGS (12)
  1. AMLODIPINE (UNKNOWN) [Suspect]
     Indication: PRODUCT USED FOR UNKNOWN INDICATION
  2. SIMVASTATIN [Suspect]
  3. FLUOXETINE [Suspect]
  4. SUMATRIPTAN (UNKNOWN) (SUMATRIPTAN) [Suspect]
  5. ZOLPIDEM (UNKNOWN) [Suspect]
  6. ARIPIPRAZOLE [Suspect]
  7. TIZANIDINE [Suspect]
  8. HYDROCODONE (UNKNOWN) [Suspect]
  9. OXYCODONE [Suspect]
  10. AMITRIPTYLINE [Suspect]
  11. HYOSCYAMINE [Suspect]
  12. ACETAMINOPHEN [Suspect]

REACTIONS (1)
  - Completed suicide [None]
